FAERS Safety Report 9291947 (Version 2)
Quarter: 2013Q2

REPORT INFORMATION
  Report Type: Spontaneous
  Country: BR (occurrence: BR)
  Receive Date: 20130516
  Receipt Date: 20130516
  Transmission Date: 20140414
  Serious: Yes (Hospitalization, Other)
  Sender: FDA-Public Use
  Company Number: BR-ABBOTT-13P-020-1042913-00

PATIENT
  Age: 56 Year
  Sex: Female
  Weight: 68 kg

DRUGS (14)
  1. DEPAKENE [Suspect]
     Indication: PRODUCT USED FOR UNKNOWN INDICATION
     Dates: start: 2011, end: 201209
  2. DEPAKOTE [Suspect]
     Indication: PARTIAL SEIZURES
     Dosage: AT NIGHT
     Route: 048
     Dates: start: 2010
  3. RIVOTRIL [Suspect]
     Indication: VERTIGO
     Route: 048
     Dates: start: 20130126
  4. RIVOTRIL [Suspect]
     Indication: DIZZINESS
  5. HIDROXINE [Suspect]
     Indication: RHINITIS ALLERGIC
     Dates: start: 20130508
  6. CELESTAMINE [Suspect]
     Indication: RHINITIS ALLERGIC
     Dates: end: 20130508
  7. DONAREN [Concomitant]
     Indication: DEPRESSION
     Dosage: DAILY DOSE: 50 OR 100 MG; AT NIGHT
     Route: 048
     Dates: start: 20130125
  8. DONAREN [Concomitant]
     Indication: MEMORY IMPAIRMENT
  9. OMEGA 3 [Concomitant]
     Indication: BLOOD CHOLESTEROL ABNORMAL
     Dosage: IN THE MORNING
     Route: 048
     Dates: start: 201301
  10. OMEGA 3 [Concomitant]
     Indication: ANTIINFLAMMATORY THERAPY
  11. VENLAXIN [Concomitant]
     Indication: ANXIETY
     Dosage: AT NIGHT
     Route: 048
     Dates: start: 20130125
  12. VENLAXIN [Concomitant]
     Indication: DEPRESSION
  13. CALCIUM [Concomitant]
     Indication: ARTHROPATHY
     Dosage: 1 SACHET PER DAY IN THE MORNING
  14. RISPERIDONE [Concomitant]
     Indication: PETIT MAL EPILEPSY
     Dosage: 1 TABLET AT NIGHT

REACTIONS (11)
  - Syncope [Recovering/Resolving]
  - Hallucination [Recovering/Resolving]
  - Petit mal epilepsy [Recovering/Resolving]
  - Memory impairment [Not Recovered/Not Resolved]
  - Weight increased [Not Recovered/Not Resolved]
  - Dizziness [Recovered/Resolved]
  - Self-medication [Unknown]
  - Blood pressure abnormal [Unknown]
  - Somnolence [Unknown]
  - Sneezing [Unknown]
  - Treatment noncompliance [None]
